FAERS Safety Report 5358481-5 (Version None)
Quarter: 2007Q2

REPORT INFORMATION
  Report Type: 
  Country: None (occurrence: None)
  Receive Date: 20070614
  Receipt Date: 20070614
  Transmission Date: 20071010
  Serious: Yes (Life-Threatening, Hospitalization)
  Sender: FDA-Public Use
  Company Number: None

PATIENT
  Age: 71 Year
  Sex: Female
  Weight: 69 kg

DRUGS (3)
  1. OXALIPLATIN [Suspect]
     Indication: ADENOCARCINOMA
     Dosage: 175 MG EVERY 2 WEEKS IV DRIP
     Route: 041
     Dates: start: 20070320, end: 20070612
  2. OXALIPLATIN [Suspect]
     Indication: METASTASIS
     Dosage: 175 MG EVERY 2 WEEKS IV DRIP
     Route: 041
     Dates: start: 20070320, end: 20070612
  3. GEMCITABINE HCL [Concomitant]

REACTIONS (3)
  - CEREBROVASCULAR ACCIDENT [None]
  - DYSARTHRIA [None]
  - HEMIPARESIS [None]
